FAERS Safety Report 9679223 (Version 1)
Quarter: 2013Q4

REPORT INFORMATION
  Report Type: Spontaneous
  Country: US (occurrence: US)
  Receive Date: 20131108
  Receipt Date: 20131108
  Transmission Date: 20140711
  Serious: Yes (Other)
  Sender: FDA-Public Use
  Company Number: US-RB-060290-13

PATIENT
  Age: 35 Year
  Sex: Female

DRUGS (4)
  1. SUBOXONE FILM [Suspect]
     Indication: DRUG DEPENDENCE
     Dosage: SUBOXONE FILM
     Route: 060
     Dates: start: 2013, end: 201305
  2. BUPRENORPHINE GENERIC [Suspect]
     Indication: DRUG DEPENDENCE
     Route: 060
     Dates: start: 201305, end: 201307
  3. BUPRENORPHINE GENERIC [Suspect]
     Route: 060
     Dates: start: 201307, end: 201308
  4. BUPRENORPHINE GENERIC [Suspect]
     Route: 060
     Dates: start: 201308

REACTIONS (5)
  - Wrong technique in drug usage process [Recovered/Resolved]
  - Maternal exposure during pregnancy [Not Recovered/Not Resolved]
  - Ankle fracture [Recovered/Resolved]
  - Arthralgia [Recovered/Resolved]
  - Off label use [Recovered/Resolved]
